FAERS Safety Report 17575867 (Version 2)
Quarter: 2020Q2

REPORT INFORMATION
  Report Type: Spontaneous
  Country: IT (occurrence: IT)
  Receive Date: 20200324
  Receipt Date: 20200403
  Transmission Date: 20200713
  Serious: Yes (Hospitalization, Other)
  Sender: FDA-Public Use
  Company Number: IT-MACLEODS PHARMACEUTICALS US LTD-MAC2020025879

PATIENT

DRUGS (3)
  1. PROPAFENONE. [Suspect]
     Active Substance: PROPAFENONE
     Dosage: UNK, EVENING
     Route: 048
     Dates: start: 20190414
  2. LIDOCAINE. [Suspect]
     Active Substance: LIDOCAINE
     Indication: VENTRICULAR TACHYCARDIA
     Dosage: 100 MILLIGRAM, INFUSION,EVENING
     Route: 065
     Dates: start: 20190414, end: 20190414
  3. PROPAFENONE. [Suspect]
     Active Substance: PROPAFENONE
     Indication: ATRIAL FIBRILLATION
     Dosage: 150 MILLIGRAM, TID
     Route: 048

REACTIONS (9)
  - Cardiac arrest [Recovered/Resolved]
  - Supraventricular tachycardia [Recovered/Resolved]
  - Bradycardia [Recovered/Resolved]
  - Haemodynamic instability [Recovered/Resolved]
  - Electrocardiogram QRS complex prolonged [Recovered/Resolved]
  - Electrocardiogram PR prolongation [Recovered/Resolved]
  - Rhythm idioventricular [Recovered/Resolved]
  - Bundle branch block bilateral [Recovered/Resolved]
  - Nodal rhythm [Recovered/Resolved]
